FAERS Safety Report 4808334-3 (Version None)
Quarter: 2005Q4

REPORT INFORMATION
  Report Type: 
  Country: None (occurrence: None)
  Receive Date: 20051025
  Receipt Date: 20050817
  Transmission Date: 20060501
  Serious: Yes (Other)
  Sender: FDA-Public Use
  Company Number: 2005AC01209

PATIENT
  Age: 21973 Day
  Sex: Female
  Weight: 65 kg

DRUGS (4)
  1. CRESTOR [Suspect]
     Indication: HYPERCHOLESTEROLAEMIA
     Dosage: BATCH NO. 56003
     Route: 048
     Dates: start: 20050529, end: 20050721
  2. SERTRALINA [Concomitant]
     Indication: DEPRESSION
     Route: 048
     Dates: start: 20050418
  3. ALPRAZOLAM [Concomitant]
     Indication: ANXIETY
     Route: 048
     Dates: start: 20040203
  4. GLUCOSAMINE SULPHATE [Concomitant]
     Indication: OSTEOARTHRITIS
     Route: 048
     Dates: start: 20040203

REACTIONS (12)
  - ABDOMINAL DISTENSION [None]
  - ABDOMINAL PAIN UPPER [None]
  - ANOREXIA [None]
  - BLOOD CREATINE PHOSPHOKINASE INCREASED [None]
  - BLOOD CREATINE PHOSPHOKINASE MB INCREASED [None]
  - BLOOD LACTATE DEHYDROGENASE INCREASED [None]
  - CHILLS [None]
  - DIARRHOEA [None]
  - HYPERTHERMIA [None]
  - NAUSEA [None]
  - RHABDOMYOLYSIS [None]
  - VOMITING [None]
